FAERS Safety Report 6612894-X (Version None)
Quarter: 2010Q1

REPORT INFORMATION
  Report Type: 
  Country: None (occurrence: None)
  Receive Date: 20100303
  Receipt Date: 20100217
  Transmission Date: 20100710
  Serious: Yes (Hospitalization)
  Sender: FDA-Public Use
  Company Number: NO-MYLANLABS-2010S1002660

PATIENT
  Age: 57 Year
  Sex: Male

DRUGS (12)
  1. METFORMIN HYDROCHLORIDE [Suspect]
     Indication: TYPE 2 DIABETES MELLITUS
     Dates: start: 19990101, end: 20040101
  2. METFORMIN HYDROCHLORIDE [Suspect]
     Dates: start: 20040101, end: 20080301
  3. METFORMIN HYDROCHLORIDE [Suspect]
     Dates: start: 20040101, end: 20080301
  4. METFORMIN HYDROCHLORIDE [Suspect]
     Dates: start: 20080101, end: 20080101
  5. GLIPIZIDE [Concomitant]
     Dates: start: 19960101
  6. METOPROLOL TARTRATE [Concomitant]
  7. ISOSORBIDE DINITRATE [Concomitant]
  8. RAMIPRIL [Concomitant]
  9. ATORVASTATIN [Concomitant]
  10. CLOPIDOGREL [Concomitant]
  11. ASPIRIN [Concomitant]
  12. LANSOPRAZOLE [Concomitant]

REACTIONS (4)
  - DIARRHOEA [None]
  - HYPOCALCAEMIA [None]
  - HYPOKALAEMIA [None]
  - HYPOMAGNESAEMIA [None]
